FAERS Safety Report 13736404 (Version 1)
Quarter: 2017Q3

REPORT INFORMATION
  Report Type: Spontaneous
  Country: US (occurrence: US)
  Receive Date: 20170710
  Receipt Date: 20170710
  Transmission Date: 20171127
  Serious: Yes (Hospitalization, Other)
  Sender: FDA-Public Use
  Company Number: US-PFIZER INC-2017288374

PATIENT
  Age: 22 Year
  Sex: Male

DRUGS (3)
  1. DIPHENHYDRAMINE. [Concomitant]
     Active Substance: DIPHENHYDRAMINE
  2. PHENYTOIN. [Suspect]
     Active Substance: PHENYTOIN
     Indication: POST-TRAUMATIC EPILEPSY
     Dosage: 300 MG, DAILY
     Route: 048
  3. PHENOBARBITAL. [Suspect]
     Active Substance: PHENOBARBITAL
     Dosage: 120 MG, DAILY (BEGUN ON HOSPITAL DAY 8, DISCONTINUED ON HOSPITAL DAY 12)

REACTIONS (6)
  - Drug reaction with eosinophilia and systemic symptoms [Recovered/Resolved]
  - Rash [Recovered/Resolved]
  - Pyrexia [Recovered/Resolved]
  - Therapeutic product cross-reactivity [Recovered/Resolved]
  - Condition aggravated [Recovered/Resolved]
  - Rhabdomyolysis [Recovered/Resolved]
